FAERS Safety Report 23305032 (Version 2)
Quarter: 2024Q1

REPORT INFORMATION
  Report Type: Spontaneous
  Country: FR (occurrence: FR)
  Receive Date: 20231218
  Receipt Date: 20240307
  Transmission Date: 20240410
  Serious: Yes (Other)
  Sender: FDA-Public Use
  Company Number: FR-JNJFOC-20231223160

PATIENT
  Age: 8 Decade
  Sex: Male

DRUGS (3)
  1. ERDAFITINIB [Suspect]
     Active Substance: ERDAFITINIB
     Indication: Transitional cell carcinoma
     Dosage: FIRST LINE TREATMENT
     Route: 065
     Dates: start: 20210202, end: 20210702
  2. ERDAFITINIB [Suspect]
     Active Substance: ERDAFITINIB
     Dosage: SECOND LINE TREATMENT
     Route: 065
     Dates: start: 20211014, end: 20230214
  3. ERDAFITINIB [Suspect]
     Active Substance: ERDAFITINIB
     Route: 065
     Dates: end: 20230530

REACTIONS (1)
  - Retinal detachment [Unknown]
